FAERS Safety Report 15179153 (Version 3)
Quarter: 2025Q4

REPORT INFORMATION
  Report Type: Report from Study
  Country: JP (occurrence: JP)
  Receive Date: 20180723
  Receipt Date: 20251031
  Transmission Date: 20260118
  Serious: Yes (Death, Life-Threatening, Other)
  Sender: BRISTOL-MYERS SQUIBB COMPANY
  Company Number: JP-BRISTOL-MYERS SQUIBB COMPANY-BMS-2017-086578

PATIENT
  Age: 83 Year
  Sex: Male
  Weight: 46 kg

DRUGS (4)
  1. OPDIVO [Suspect]
     Active Substance: NIVOLUMAB
     Indication: Malignant melanoma
     Dosage: 3MG/KG, 3MG/KG/DAY (24/2/2017, 10/3/2017, 31/3/2017, 21/4/2017, 12/5/2017, 2/6/2017)
     Route: 041
     Dates: start: 20170224, end: 20170602
  2. ALLEGRA [Concomitant]
     Active Substance: FEXOFENADINE HYDROCHLORIDE
     Indication: Product used for unknown indication
     Dosage: 60 MG, Q12H
  3. LOXOPROFEN [Concomitant]
     Active Substance: LOXOPROFEN
     Indication: Pain
     Dosage: 60 MG, Q12H
     Dates: start: 20170602, end: 20170721
  4. REBAMIPIDE [Concomitant]
     Active Substance: REBAMIPIDE
     Indication: Prophylaxis
     Dosage: 100 MG, Q12H
     Dates: start: 20170602, end: 20170721

REACTIONS (6)
  - Immune-mediated lung disease [Fatal]
  - Inappropriate schedule of product administration [Unknown]
  - Malignant neoplasm progression [Unknown]
  - Candida infection [Unknown]
  - Escherichia test positive [Unknown]
  - Stenotrophomonas test positive [Unknown]

NARRATIVE: CASE EVENT DATE: 20170331
